FAERS Safety Report 6849282-7 (Version None)
Quarter: 2010Q3

REPORT INFORMATION
  Report Type: 
  Country: None (occurrence: None)
  Receive Date: 20100716
  Receipt Date: 20070925
  Transmission Date: 20110219
  Serious: No
  Sender: FDA-Public Use
  Company Number: US-PFIZER INC-2007082444

PATIENT
  Sex: Female
  Weight: 54.5 kg

DRUGS (3)
  1. CHANTIX [Suspect]
     Indication: SMOKING CESSATION THERAPY
     Dosage: EVERY DAY
     Dates: start: 20070801
  2. LEXAPRO [Interacting]
     Indication: PANIC ATTACK
     Dates: start: 20040101
  3. LEXAPRO [Interacting]
     Indication: ANXIETY

REACTIONS (8)
  - DIZZINESS [None]
  - DRUG INTERACTION [None]
  - EMOTIONAL DISORDER [None]
  - FEELING ABNORMAL [None]
  - HEADACHE [None]
  - INSOMNIA [None]
  - POOR QUALITY SLEEP [None]
  - RESTLESSNESS [None]
